FAERS Safety Report 4963294-X (Version None)
Quarter: 2006Q2

REPORT INFORMATION
  Report Type: 
  Country: None (occurrence: None)
  Receive Date: 20060404
  Receipt Date: 20060404
  Transmission Date: 20061013
  Serious: Yes (Other)
  Sender: FDA-Public Use
  Company Number: None

PATIENT
  Age: 67 Year
  Sex: Male
  Weight: 82.3 kg

DRUGS (2)
  1. CLOPIDOGREL [Suspect]
     Indication: STENT PLACEMENT
     Dosage: 75 MG   DAILY    PO
     Route: 048
     Dates: start: 20040928, end: 20050605
  2. CLOPIDOGREL [Suspect]
     Indication: STENT PLACEMENT
     Dosage: 75 MG   DAILY    PO
     Route: 048
     Dates: start: 20051104, end: 20051109

REACTIONS (2)
  - PETECHIAE [None]
  - RASH PRURITIC [None]
